FAERS Safety Report 7544913-0 (Version None)
Quarter: 2011Q2

REPORT INFORMATION
  Report Type: 
  Country: None (occurrence: None)
  Receive Date: 20110614
  Receipt Date: 20110527
  Transmission Date: 20111010
  Serious: Yes (Other)
  Sender: FDA-Public Use
  Company Number: US-BAYER-2010-009104

PATIENT
  Age: 21 Year
  Sex: Female
  Weight: 131.52 kg

DRUGS (5)
  1. ZANTAC [Concomitant]
  2. EFFEXOR [Concomitant]
  3. YASMIN [Suspect]
     Indication: CONTRACEPTION
     Dosage: UNK
     Dates: start: 20010101, end: 20040801
  4. PHENERGAN HCL [Concomitant]
  5. LORTAB [Concomitant]

REACTIONS (4)
  - PAIN [None]
  - GALLBLADDER DISORDER [None]
  - CHOLELITHIASIS [None]
  - CHOLECYSTITIS ACUTE [None]
